FAERS Safety Report 6833744 (Version 2)
Quarter: 2012Q4

REPORT INFORMATION
  Report Type: Report from Study
  Country: AU (occurrence: AU)
  Receive Date: 20081205
  Receipt Date: 20121224
  Transmission Date: 20130627
  Serious: Yes (Hospitalization)
  Sender: FDA-Public Use
  Company Number: AU-BRISTOL-MYERS SQUIBB COMPANY-14428395

PATIENT
  Age: 75 Year
  Sex: Male

DRUGS (9)
  1. CETUXIMAB [Suspect]
     Indication: COLORECTAL CANCER
     Dosage: First infusion 09-Oct-2008
     Route: 042
     Dates: start: 20081120
  2. ERLOTINIB [Suspect]
     Indication: COLORECTAL CANCER
     Dosage: First dose 09-Oct-2008
     Route: 048
     Dates: start: 20081127
  3. DIAMICRON [Concomitant]
     Indication: TYPE 2 DIABETES MELLITUS
     Route: 048
     Dates: start: 20070206, end: 20081127
  4. LOPERAMIDE [Concomitant]
     Indication: DIARRHOEA
     Dosage: then 11 mg from 26-Nov-2008
     Route: 048
     Dates: start: 20081012, end: 20081013
  5. MINOCYCLINE [Concomitant]
     Indication: DERMATITIS ACNEIFORM
     Route: 048
     Dates: start: 20081014, end: 20090402
  6. ERYTHROMYCIN [Concomitant]
     Indication: DERMATITIS ACNEIFORM
     Dosage: 20 mg/g 2 percent
     Route: 061
     Dates: start: 20081027, end: 20090402
  7. BETAMETHASONE [Concomitant]
     Indication: DERMATITIS ACNEIFORM
     Dosage: 0.02 percent 0.2 mg/g
     Route: 061
     Dates: start: 20081027, end: 20090402
  8. VISINE [Concomitant]
     Indication: DRY EYE
     Dosage: eye drops 0/7 intraocularly
     Route: 031
     Dates: start: 20081022, end: 20081027
  9. AUGMENTIN [Concomitant]
     Indication: URINARY TRACT INFECTION
     Dosage: tablet 0/1
     Route: 048
     Dates: start: 20081124, end: 20081127

REACTIONS (1)
  - Jaundice cholestatic [Recovered/Resolved]
